FAERS Safety Report 15676727 (Version 2)
Quarter: 2018Q4

REPORT INFORMATION
  Report Type: Spontaneous
  Country: FR (occurrence: FR)
  Receive Date: 20181130
  Receipt Date: 20181130
  Transmission Date: 20190205
  Serious: Yes (Other)
  Sender: FDA-Public Use
  Company Number: PHHY2018FR167580

PATIENT
  Age: 71 Year
  Sex: Female
  Weight: 60 kg

DRUGS (1)
  1. PILOCARPINE HCL [Suspect]
     Active Substance: PILOCARPINE HYDROCHLORIDE
     Indication: MYDRIASIS
     Dosage: 1 GTT, QD
     Route: 047
     Dates: start: 20150210, end: 20150610

REACTIONS (2)
  - Posterior capsule opacification [Recovered/Resolved with Sequelae]
  - Vitreous floaters [Recovered/Resolved with Sequelae]
